FAERS Safety Report 6705990-X (Version None)
Quarter: 2010Q2

REPORT INFORMATION
  Report Type: 
  Country: None (occurrence: None)
  Receive Date: 20100430
  Receipt Date: 20100430
  Transmission Date: 20101027
  Serious: Yes (Hospitalization)
  Sender: FDA-Public Use
  Company Number: None

PATIENT
  Age: 73 Year
  Sex: Male
  Weight: 72.6 kg

DRUGS (2)
  1. EVEROLIMUS [Suspect]
     Indication: DIFFUSE LARGE B-CELL LYMPHOMA
     Dosage: EVEROLIMUS 5MG DAILY
     Dates: start: 20100407, end: 20100412
  2. RITUXAN [Suspect]
     Indication: DIFFUSE LARGE B-CELL LYMPHOMA
     Dates: start: 20100407, end: 20100407

REACTIONS (17)
  - BLOOD URIC ACID INCREASED [None]
  - BODY TEMPERATURE INCREASED [None]
  - COUGH [None]
  - DECREASED APPETITE [None]
  - DEHYDRATION [None]
  - DEPRESSED LEVEL OF CONSCIOUSNESS [None]
  - DIFFUSE LARGE B-CELL LYMPHOMA [None]
  - DISEASE PROGRESSION [None]
  - FAILURE TO THRIVE [None]
  - FATIGUE [None]
  - GENERAL PHYSICAL HEALTH DETERIORATION [None]
  - HERPES VIRUS INFECTION [None]
  - HYPOXIA [None]
  - MOUTH ULCERATION [None]
  - MUCOSAL INFLAMMATION [None]
  - PNEUMONIA ASPIRATION [None]
  - THROMBOCYTOPENIA [None]
